FAERS Safety Report 19141209 (Version 1)
Quarter: 2021Q2

REPORT INFORMATION
  Report Type: Spontaneous
  Country: US (occurrence: US)
  Receive Date: 20210415
  Receipt Date: 20210415
  Transmission Date: 20210717
  Serious: No
  Sender: FDA-Public Use
  Company Number: US-SA-2021SA120759

PATIENT
  Age: 42 Year
  Sex: Male

DRUGS (2)
  1. DICLOFENAC [Concomitant]
     Active Substance: DICLOFENAC
  2. DUPIXENT [Suspect]
     Active Substance: DUPILUMAB
     Dosage: 300 MG
     Route: 058

REACTIONS (1)
  - Product dose omission issue [Unknown]
